FAERS Safety Report 14943708 (Version 3)
Quarter: 2018Q2

REPORT INFORMATION
  Report Type: Report from Study
  Country: None (occurrence: RO)
  Receive Date: 20180528
  Receipt Date: 20180620
  Transmission Date: 20180711
  Serious: Yes (Hospitalization)
  Sender: FDA-Public Use
  Company Number: RO-ABBVIE-18P-135-2364927-00

PATIENT
  Age: 73 Year
  Sex: Female

DRUGS (12)
  1. PREDUCTAL [Concomitant]
     Active Substance: TRIMETAZIDINE DIHYDROCHLORIDE
     Indication: MYOCARDIAL ISCHAEMIA
     Route: 048
  2. TENAXUM [Concomitant]
     Active Substance: RILMENIDINE
     Indication: ESSENTIAL HYPERTENSION
     Route: 048
  3. EXVIERA [Suspect]
     Active Substance: DASABUVIR
     Indication: HEPATIC CIRRHOSIS
  4. NEBILET [Concomitant]
     Active Substance: NEBIVOLOL
     Indication: ESSENTIAL HYPERTENSION
     Route: 048
  5. VIEKIRAX [Suspect]
     Active Substance: OMBITASVIR\PARITAPREVIR\RITONAVIR
     Indication: HEPATITIS C
     Route: 048
     Dates: start: 20180402, end: 20180504
  6. OLICARD [Concomitant]
     Active Substance: ISOSORBIDE MONONITRATE
     Indication: MYOCARDIAL ISCHAEMIA
     Route: 048
  7. EXVIERA [Suspect]
     Active Substance: DASABUVIR
     Indication: HEPATITIS C
     Route: 048
     Dates: start: 20180402, end: 20180504
  8. SINTROM [Concomitant]
     Active Substance: ACENOCOUMAROL
     Indication: ATRIAL FIBRILLATION
     Dosage: 3 DAYS 1TB / DAY ON THE FOURTH DAY ? TB AND ON THE FIFTH DAY THE CYCLE RESUMES
     Route: 048
  9. SEVIKAR [Concomitant]
     Active Substance: AMLODIPINE BESYLATE\OLMESARTAN MEDOXOMIL
     Indication: HYPERTENSION
     Route: 048
  10. VIEKIRAX [Suspect]
     Active Substance: OMBITASVIR\PARITAPREVIR\RITONAVIR
     Indication: HEPATIC CIRRHOSIS
  11. OLICARD [Concomitant]
     Active Substance: ISOSORBIDE MONONITRATE
     Indication: ESSENTIAL HYPERTENSION
  12. DIUREX [Concomitant]
     Active Substance: AMILORIDE HYDROCHLORIDE\HYDROCHLOROTHIAZIDE
     Indication: ESSENTIAL HYPERTENSION
     Route: 048

REACTIONS (13)
  - Metabolic acidosis [Recovered/Resolved]
  - Abdominal pain upper [Recovered/Resolved]
  - Transaminases decreased [Recovered/Resolved]
  - Hyponatraemia [Recovered/Resolved]
  - Hepatocellular injury [Recovered/Resolved]
  - General physical health deterioration [Recovered/Resolved]
  - Blood pressure fluctuation [Not Recovered/Not Resolved]
  - Palpitations [Recovered/Resolved]
  - Nausea [Recovered/Resolved]
  - Muscular weakness [Recovered/Resolved]
  - Abdominal pain upper [Recovered/Resolved]
  - Hyperkalaemia [Recovered/Resolved]
  - Vomiting [Recovered/Resolved]

NARRATIVE: CASE EVENT DATE: 2018
